FAERS Safety Report 18349217 (Version 1)
Quarter: 2020Q4

REPORT INFORMATION
  Report Type: Spontaneous
  Country: SE (occurrence: SE)
  Receive Date: 20201006
  Receipt Date: 20201006
  Transmission Date: 20210114
  Serious: Yes (Other)
  Sender: FDA-Public Use
  Company Number: SE-PFIZER INC-2020380356

PATIENT
  Age: 47 Year
  Sex: Female
  Weight: 87 kg

DRUGS (3)
  1. DALACIN [Suspect]
     Active Substance: CLINDAMYCIN
     Indication: BACTERIAL VAGINOSIS
     Dosage: TUBE WITH 40 G, DIVIDED OVER SEVEN DAYS. DISCONTINUED AFTER DAY 4.
     Dates: start: 20200907, end: 20200911
  2. VITAMIN D [VITAMIN D NOS] [Concomitant]
     Active Substance: VITAMIN D NOS
     Dosage: 20 MG
     Dates: start: 20200701
  3. DIMOR [Concomitant]
     Active Substance: LOPERAMIDE
     Dosage: UNK

REACTIONS (2)
  - Swollen tongue [Recovering/Resolving]
  - Genital infection fungal [Recovering/Resolving]

NARRATIVE: CASE EVENT DATE: 20200907
